FAERS Safety Report 8511332-X (Version None)
Quarter: 2012Q2

REPORT INFORMATION
  Report Type: 
  Country: None (occurrence: None)
  Receive Date: 20120629
  Receipt Date: 20120621
  Transmission Date: 20120825
  Serious: Yes (Other)
  Sender: FDA-Public Use
  Company Number: 2012SP030996

PATIENT
  Age: 13 Year
  Sex: Female

DRUGS (3)
  1. IMPLANON [Suspect]
  2. IMPLANON [Suspect]
     Indication: CONTRACEPTION
     Dosage: 1 DF; SBDE
     Route: 059
     Dates: end: 20120511
  3. IMPLANON [Suspect]
     Indication: CONTRACEPTION
     Dosage: 1 DF; SBDE
     Route: 059
     Dates: start: 20120511, end: 20120612

REACTIONS (6)
  - SKIN DEPIGMENTATION [None]
  - IMPLANT SITE INDURATION [None]
  - PRODUCT QUALITY ISSUE [None]
  - IMPLANT SITE REACTION [None]
  - INCORRECT DOSE ADMINISTERED BY DEVICE [None]
  - TENDERNESS [None]
